FAERS Safety Report 10424491 (Version 1)
Quarter: 2014Q3

REPORT INFORMATION
  Report Type: Spontaneous
  Country: DE (occurrence: DE)
  Receive Date: 20140902
  Receipt Date: 20140902
  Transmission Date: 20150326
  Serious: Yes (Life-Threatening, Hospitalization)
  Sender: FDA-Public Use
  Company Number: DE-ACTAVIS-2014-18788

PATIENT
  Age: 64 Year
  Sex: Male
  Weight: 70 kg

DRUGS (1)
  1. PACLITAXEL (UNKNOWN) [Suspect]
     Active Substance: PACLITAXEL
     Indication: METASTATIC NEOPLASM
     Dosage: 313 MG, DAILY
     Route: 042
     Dates: start: 20140731

REACTIONS (4)
  - Loss of consciousness [Unknown]
  - Cardiovascular insufficiency [Unknown]
  - Dyspnoea [Unknown]
  - Respiratory failure [Unknown]

NARRATIVE: CASE EVENT DATE: 20140731
